FAERS Safety Report 8976733 (Version 4)
Quarter: 2013Q3

REPORT INFORMATION
  Report Type: Spontaneous
  Country: JP (occurrence: JP)
  Receive Date: 20121220
  Receipt Date: 20130729
  Transmission Date: 20140515
  Serious: Yes (Disabling)
  Sender: FDA-Public Use
  Company Number: JP-BRISTOL-MYERS SQUIBB COMPANY-17224858

PATIENT
  Age: 64 Year
  Sex: Female

DRUGS (2)
  1. ORENCIA FOR INJ 250 MG/VIAL [Suspect]
     Indication: RHEUMATOID ARTHRITIS
     Route: 042
  2. METHOTREXATE [Concomitant]

REACTIONS (1)
  - Cerebral infarction [Recovered/Resolved]
